FAERS Safety Report 19581335 (Version 1)
Quarter: 2021Q3

REPORT INFORMATION
  Report Type: Spontaneous
  Country: US (occurrence: US)
  Receive Date: 20210719
  Receipt Date: 20210719
  Transmission Date: 20211014
  Serious: No
  Sender: FDA-Public Use
  Company Number: US-009507513-2107USA001203

PATIENT
  Sex: Female

DRUGS (2)
  1. LINEZOLID. [Concomitant]
     Active Substance: LINEZOLID
     Indication: VULVAL ABSCESS
     Dosage: UNK
     Route: 048
     Dates: start: 2021
  2. INVANZ [Suspect]
     Active Substance: ERTAPENEM SODIUM
     Indication: VULVAL ABSCESS
     Dosage: 1 GRAM, DAILY
     Route: 042
     Dates: start: 20210626

REACTIONS (4)
  - Product use in unapproved indication [Unknown]
  - Circumstance or information capable of leading to medication error [Unknown]
  - No adverse event [Unknown]
  - Product prescribing error [Unknown]

NARRATIVE: CASE EVENT DATE: 20210626
